FAERS Safety Report 6274775-3 (Version None)
Quarter: 2009Q3

REPORT INFORMATION
  Report Type: 
  Country: None (occurrence: None)
  Receive Date: 20090717
  Receipt Date: 20090706
  Transmission Date: 20100115
  Serious: Yes (Hospitalization)
  Sender: FDA-Public Use
  Company Number: MC200900242

PATIENT
  Age: 63 Year
  Sex: Male

DRUGS (2)
  1. CLEVIPREX [Suspect]
     Indication: BLOOD PRESSURE MANAGEMENT
     Dosage: 1 MG, HR, (TITRATED UP  TO A MAX OF 8 MG/HR), INTRAVENOUS
     Route: 042
     Dates: start: 20090701, end: 20090701
  2. SODIUM NITROPRUSSIDE [Suspect]
     Dates: start: 20090701, end: 20090703

REACTIONS (2)
  - CEREBROVASCULAR ACCIDENT [None]
  - HYPOTENSION [None]
